FAERS Safety Report 5373911-0 (Version None)
Quarter: 2007Q2

REPORT INFORMATION
  Report Type: 
  Country: None (occurrence: None)
  Receive Date: 20070628
  Receipt Date: 20070618
  Transmission Date: 20071010
  Serious: Yes (Other)
  Sender: FDA-Public Use
  Company Number: US-PFIZER INC-2007052108

PATIENT
  Sex: Female
  Weight: 77.272 kg

DRUGS (3)
  1. CHANTIX [Suspect]
  2. MELOXICAM [Concomitant]
  3. AMBIEN [Concomitant]

REACTIONS (5)
  - ARTHROPOD BITE [None]
  - DIZZINESS [None]
  - FEELING ABNORMAL [None]
  - LYME DISEASE [None]
  - PARAESTHESIA [None]
